FAERS Safety Report 9767570 (Version 2)
Quarter: 2013Q4

REPORT INFORMATION
  Report Type: Spontaneous
  Country: US (occurrence: US)
  Receive Date: 20131217
  Receipt Date: 20131217
  Transmission Date: 20140711
  Serious: No
  Sender: FDA-Public Use
  Company Number: US-GILEAD-2009-0024744

PATIENT
  Age: 30 Year
  Sex: Male

DRUGS (3)
  1. VIREAD [Suspect]
     Indication: HEPATITIS B
     Dates: start: 20090424, end: 20090611
  2. MOTRIN [Concomitant]
     Dates: start: 20081129, end: 20090720
  3. LORATADINE [Concomitant]
     Dates: start: 20081208

REACTIONS (4)
  - Headache [Recovered/Resolved]
  - Defaecation urgency [Recovered/Resolved]
  - Malaise [Recovered/Resolved]
  - Fatigue [Recovered/Resolved]
